FAERS Safety Report 6808076-9 (Version None)
Quarter: 2010Q2

REPORT INFORMATION
  Report Type: 
  Country: None (occurrence: None)
  Receive Date: 20100629
  Receipt Date: 20090323
  Transmission Date: 20101027
  Serious: No
  Sender: FDA-Public Use
  Company Number: US-PFIZER INC-2009172036

PATIENT
  Sex: Female
  Weight: 59 kg

DRUGS (2)
  1. ALPRAZOLAM [Suspect]
     Indication: SLEEP DISORDER
     Dosage: 0.25 MG, 1X/DAY
     Route: 048
     Dates: start: 20070101
  2. DITROPAN [Concomitant]
     Dosage: UNK

REACTIONS (5)
  - DRY MOUTH [None]
  - DYSGEUSIA [None]
  - LIP DRY [None]
  - LIP SWELLING [None]
  - SWOLLEN TONGUE [None]
